FAERS Safety Report 21158207 (Version 2)
Quarter: 2022Q3

REPORT INFORMATION
  Report Type: Spontaneous
  Country: US (occurrence: US)
  Receive Date: 20220801
  Receipt Date: 20220817
  Transmission Date: 20221027
  Serious: Yes (Hospitalization, Other)
  Sender: FDA-Public Use
  Company Number: US-ELITE LABORATORIES INC.-2022ELT00075

PATIENT
  Sex: Female
  Weight: 77.098 kg

DRUGS (3)
  1. PHENTERMINE [Suspect]
     Active Substance: PHENTERMINE
     Indication: Weight decreased
     Dosage: 37.5 MG, 1X/DAY
     Route: 048
     Dates: start: 2013
  2. PHENTERMINE [Suspect]
     Active Substance: PHENTERMINE
     Dosage: 37.5 MG, 1X/DAY OFF AND ON AGAIN
     Route: 048
  3. PHENTERMINE [Suspect]
     Active Substance: PHENTERMINE
     Dosage: 37.5 MG, 1X/DAY
     Route: 048
     Dates: start: 2021, end: 2021

REACTIONS (3)
  - Myocardial infarction [Recovered/Resolved]
  - Heart valve incompetence [Not Recovered/Not Resolved]
  - Pulmonary valve incompetence [Not Recovered/Not Resolved]

NARRATIVE: CASE EVENT DATE: 20190101
